FAERS Safety Report 7778601-2 (Version None)
Quarter: 2011Q3

REPORT INFORMATION
  Report Type: 
  Country: None (occurrence: None)
  Receive Date: 20110926
  Receipt Date: 20110920
  Transmission Date: 20111222
  Serious: Yes (Death, Hospitalization, Other)
  Sender: FDA-Public Use
  Company Number: DE-CELGENEUS-062-50794-11060071

PATIENT
  Age: 66 Year
  Sex: Male
  Weight: 70 kg

DRUGS (2)
  1. VIDAZA [Suspect]
     Dosage: 75 MILLIGRAM/SQ. METER
     Route: 065
     Dates: start: 20100601, end: 20110101
  2. TRANSFUSION [Concomitant]
     Indication: THROMBOCYTOPENIA
     Route: 041

REACTIONS (5)
  - RENAL FAILURE ACUTE [None]
  - DRUG INEFFECTIVE [None]
  - SEPTIC SHOCK [None]
  - PNEUMONIA [None]
  - ERYSIPELAS [None]
